FAERS Safety Report 14703118 (Version 2)
Quarter: 2018Q4

REPORT INFORMATION
  Report Type: Spontaneous
  Country: FR (occurrence: FR)
  Receive Date: 20180402
  Receipt Date: 20181023
  Transmission Date: 20190204
  Serious: Yes (Other)
  Sender: FDA-Public Use
  Company Number: FR-MERCK KGAA-2044892

PATIENT
  Age: 34 Year
  Sex: Female

DRUGS (3)
  1. UN-ALFA [Concomitant]
     Active Substance: ALFACALCIDOL
  2. MOVICOL [Concomitant]
     Active Substance: POLYETHYLENE GLYCOL 3350\POTASSIUM CHLORIDE\SODIUM BICARBONATE\SODIUM CHLORIDE
  3. EUTHYROX [Suspect]
     Active Substance: LEVOTHYROXINE SODIUM
     Indication: POST PROCEDURAL HYPOTHYROIDISM
     Dates: start: 20170419

REACTIONS (31)
  - Loss of employment [None]
  - Loss of personal independence in daily activities [None]
  - Fatigue [Not Recovered/Not Resolved]
  - Disturbance in attention [None]
  - Libido decreased [None]
  - Gastrointestinal disorder [None]
  - Cardiac disorder [None]
  - Anxiety disorder [None]
  - Eye infection [None]
  - Fear of death [None]
  - Emotional distress [None]
  - Alopecia [None]
  - Night sweats [None]
  - Retinal injury [None]
  - Mood swings [None]
  - Blood calcium decreased [None]
  - Speech disorder [None]
  - Muscle spasms [None]
  - Ill-defined disorder [None]
  - Ophthalmological examination abnormal [None]
  - Depression [None]
  - Asthenia [Not Recovered/Not Resolved]
  - Social avoidant behaviour [None]
  - Visual impairment [None]
  - Personal relationship issue [None]
  - Eyelid irritation [None]
  - Blood thyroid stimulating hormone increased [None]
  - Tachycardia [Not Recovered/Not Resolved]
  - Psychiatric symptom [None]
  - Dizziness [None]
  - Impaired work ability [None]

NARRATIVE: CASE EVENT DATE: 201706
